FAERS Safety Report 23338348 (Version 1)
Quarter: 2023Q4

REPORT INFORMATION
  Report Type: Spontaneous
  Country: IN (occurrence: IN)
  Receive Date: 20231226
  Receipt Date: 20231226
  Transmission Date: 20240109
  Serious: Yes (Other)
  Sender: FDA-Public Use
  Company Number: IN-002147023-NVSC2023IN257721

PATIENT
  Sex: Male

DRUGS (2)
  1. MYFORTIC [Suspect]
     Active Substance: MYCOPHENOLATE SODIUM
     Indication: Product used for unknown indication
     Dosage: 360 MG, TID
     Route: 048
  2. TACROLIMUS [Suspect]
     Active Substance: TACROLIMUS
     Indication: Product used for unknown indication
     Dosage: 2 MG, BID
     Route: 048

REACTIONS (17)
  - Body mass index increased [Unknown]
  - Blood pressure increased [Unknown]
  - Body surface area increased [Unknown]
  - Breath sounds abnormal [Unknown]
  - Blood urea increased [Unknown]
  - Blood cholesterol increased [Unknown]
  - Blood triglycerides abnormal [Unknown]
  - High density lipoprotein increased [Unknown]
  - Low density lipoprotein increased [Unknown]
  - Very low density lipoprotein increased [Unknown]
  - Blood glucose increased [Unknown]
  - Blood thyroid stimulating hormone increased [Unknown]
  - Blood phosphorus abnormal [Unknown]
  - Blood creatine abnormal [Unknown]
  - Glomerular filtration rate abnormal [Unknown]
  - Alanine aminotransferase abnormal [Unknown]
  - Blood calcium abnormal [Unknown]
